FAERS Safety Report 10377428 (Version 1)
Quarter: 2014Q3

REPORT INFORMATION
  Report Type: Spontaneous
  Country: JP (occurrence: JP)
  Receive Date: 20140812
  Receipt Date: 20140812
  Transmission Date: 20150326
  Serious: No
  Sender: FDA-Public Use
  Company Number: PHHY2013JP160455

PATIENT
  Age: 54 Year
  Sex: Male

DRUGS (3)
  1. DASATINIB [Concomitant]
     Active Substance: DASATINIB
  2. TASIGNA [Suspect]
     Active Substance: NILOTINIB
     Indication: CHRONIC MYELOID LEUKAEMIA
     Dosage: 300 MG, PER DAY
  3. TASIGNA [Suspect]
     Active Substance: NILOTINIB
     Dosage: 800 UNK, UNK

REACTIONS (5)
  - Platelet count decreased [Unknown]
  - Faeces discoloured [Unknown]
  - Cytomegalovirus enterocolitis [Unknown]
  - Rash [Recovering/Resolving]
  - Cytomegalovirus infection [Unknown]
